FAERS Safety Report 8791144 (Version 1)
Quarter: 2012Q4

REPORT INFORMATION
  Report Type: Spontaneous
  Country: US (occurrence: None)
  Receive Date: 20120914
  Receipt Date: 20120914
  Transmission Date: 20130627
  Serious: Yes (Hospitalization)
  Sender: FDA-Public Use
  Company Number: None

PATIENT
  Sex: Male

DRUGS (2)
  1. SUTENT [Suspect]
     Dosage: 50mg daily x 4wks,2wks off oral
     Route: 048
     Dates: start: 20120806
  2. SUTENT [Suspect]
     Dosage: 50mg daily x 4wks,2wks off oral
     Route: 048
     Dates: start: 20120806

REACTIONS (1)
  - Cerebrovascular accident [None]
